FAERS Safety Report 4576246-9 (Version None)
Quarter: 2005Q1

REPORT INFORMATION
  Report Type: 
  Country: None (occurrence: None)
  Receive Date: 20050119
  Receipt Date: 20041110
  Transmission Date: 20050727
  Serious: Yes (Hospitalization)
  Sender: FDA-Public Use
  Company Number: A03200403794

PATIENT
  Age: 79 Year
  Sex: Female
  Weight: 63.05 kg

DRUGS (3)
  1. PLAVIX [Suspect]
     Indication: MITRAL VALVE REPAIR
     Dosage: 75 MG QD ORAL
     Route: 048
     Dates: start: 20040501
  2. FUROSEMIDE [Concomitant]
  3. POTASSIUM CHLORIDE [Concomitant]

REACTIONS (1)
  - RECTAL HAEMORRHAGE [None]
